FAERS Safety Report 26099370 (Version 1)
Quarter: 2025Q4

REPORT INFORMATION
  Report Type: Spontaneous
  Country: US (occurrence: US)
  Receive Date: 20251128
  Receipt Date: 20251128
  Transmission Date: 20260118
  Serious: Yes (Hospitalization)
  Sender: GENETIX BIOTHERAPEUTICS INC.
  Company Number: US-GENETIX BIOTHERAPEUTICS INC.-US-BBB-25-00086

PATIENT

DRUGS (1)
  1. LYFGENIA [Suspect]
     Active Substance: LOVOTIBEGLOGENE AUTOTEMCEL
     Indication: Sickle cell disease
     Dosage: UNK, UNK
     Route: 065

REACTIONS (6)
  - Skin burning sensation [Unknown]
  - Pruritus [Unknown]
  - Heart rate decreased [Unknown]
  - Pain [Unknown]
  - Blood pressure decreased [Unknown]
  - Stomatitis [Unknown]

NARRATIVE: CASE EVENT DATE: 20250327
